FAERS Safety Report 21691847 (Version 2)
Quarter: 2022Q4

REPORT INFORMATION
  Report Type: Report from Study
  Country: US (occurrence: US)
  Receive Date: 20221207
  Receipt Date: 20221209
  Transmission Date: 20230112
  Serious: No
  Sender: FDA-Public Use
  Company Number: US-002147023-NVSC2022US278476

PATIENT

DRUGS (1)
  1. KESIMPTA [Suspect]
     Active Substance: OFATUMUMAB
     Indication: Multiple sclerosis
     Dosage: UNK
     Route: 058
     Dates: start: 20210903

REACTIONS (7)
  - Diplopia [Unknown]
  - Dizziness [Unknown]
  - Breast pain [Unknown]
  - Dysmenorrhoea [Recovered/Resolved]
  - Feeling abnormal [Unknown]
  - Pain [Unknown]
  - Muscle spasms [Unknown]
